FAERS Safety Report 8143401-0 (Version None)
Quarter: 2012Q1

REPORT INFORMATION
  Report Type: 
  Country: None (occurrence: None)
  Receive Date: 20120217
  Receipt Date: 20120207
  Transmission Date: 20120608
  Serious: Yes (Other)
  Sender: FDA-Public Use
  Company Number: DE-JNJFOC-20120205415

PATIENT
  Sex: Female
  Weight: 91 kg

DRUGS (1)
  1. XARELTO [Suspect]
     Indication: PULMONARY EMBOLISM
     Route: 048
     Dates: start: 20111114, end: 20120104

REACTIONS (4)
  - VOMITING [None]
  - DYSGEUSIA [None]
  - APHAGIA [None]
  - NAUSEA [None]
